FAERS Safety Report 24434107 (Version 2)
Quarter: 2025Q4

REPORT INFORMATION
  Report Type: Spontaneous
  Country: US (occurrence: US)
  Receive Date: 20241014
  Receipt Date: 20251028
  Transmission Date: 20260118
  Serious: No
  Sender: ROCHE
  Company Number: US-ROCHE-10000103587

PATIENT
  Sex: Female

DRUGS (3)
  1. ACTEMRA [Suspect]
     Active Substance: TOCILIZUMAB
     Indication: Pulmonary tuberculosis
     Dosage: 400MG/20ML
     Route: 042
     Dates: start: 202409
  2. ACTEMRA [Suspect]
     Active Substance: TOCILIZUMAB
     Indication: Rheumatoid arthritis
  3. ORENCIA [Concomitant]
     Active Substance: ABATACEPT

REACTIONS (5)
  - Pain [Unknown]
  - Loss of personal independence in daily activities [Unknown]
  - Gait inability [Unknown]
  - Joint swelling [Unknown]
  - Arthralgia [Unknown]
